FAERS Safety Report 23794001 (Version 1)
Quarter: 2024Q2

REPORT INFORMATION
  Report Type: Spontaneous
  Country: US (occurrence: None)
  Receive Date: 20240426
  Receipt Date: 20240426
  Transmission Date: 20240716
  Serious: No
  Sender: FDA-Public Use
  Company Number: None

PATIENT
  Age: 83 Year
  Sex: Male

DRUGS (1)
  1. APIXABAN [Suspect]
     Active Substance: APIXABAN
     Indication: Atrial fibrillation
     Dosage: FREQUENCY : TWICE A DAY;?
     Route: 048
     Dates: start: 20210421, end: 20230521

REACTIONS (9)
  - Anaemia [None]
  - Gastrointestinal haemorrhage [None]
  - Asthenia [None]
  - Fall [None]
  - Acute kidney injury [None]
  - Haematochezia [None]
  - Dehydration [None]
  - Pneumonia [None]
  - Blood potassium increased [None]

NARRATIVE: CASE EVENT DATE: 20230521
